FAERS Safety Report 7285794-2 (Version None)
Quarter: 2011Q1

REPORT INFORMATION
  Report Type: 
  Country: None (occurrence: None)
  Receive Date: 20110125
  Receipt Date: 20110114
  Transmission Date: 20110831
  Serious: Yes (Hospitalization)
  Sender: FDA-Public Use
  Company Number: 2011SP002256

PATIENT
  Sex: Male
  Weight: 136.0791 kg

DRUGS (2)
  1. SAPHRIS [Suspect]
     Indication: BIPOLAR DISORDER
     Dosage: 10 MG; BID; SL
     Route: 060
  2. SEROQUEL [Concomitant]

REACTIONS (2)
  - OESOPHAGEAL RUPTURE [None]
  - OESOPHAGEAL ULCER [None]
